FAERS Safety Report 8316431-3 (Version None)
Quarter: 2012Q2

REPORT INFORMATION
  Report Type: 
  Country: None (occurrence: None)
  Receive Date: 20120425
  Receipt Date: 20120425
  Transmission Date: 20120825
  Serious: Yes (Life-Threatening)
  Sender: FDA-Public Use
  Company Number: None

PATIENT
  Age: 56 Year
  Sex: Male
  Weight: 94.3482 kg

DRUGS (1)
  1. CARDIZEM [Suspect]
     Indication: ATRIAL FIBRILLATION
     Dosage: 60 MG. 1 X 4 DAILY ORAL
     Route: 048
     Dates: start: 20120216

REACTIONS (3)
  - PALPITATIONS [None]
  - BLOOD PRESSURE INCREASED [None]
  - HEART RATE INCREASED [None]
